FAERS Safety Report 17604223 (Version 4)
Quarter: 2020Q2

REPORT INFORMATION
  Report Type: Spontaneous
  Country: US (occurrence: US)
  Receive Date: 20200331
  Receipt Date: 20200513
  Transmission Date: 20200713
  Serious: Yes (Other)
  Sender: FDA-Public Use
  Company Number: US-PFIZER INC-2020131592

PATIENT
  Age: 47 Year
  Sex: Male

DRUGS (6)
  1. SOMAVERT [Suspect]
     Active Substance: PEGVISOMANT
     Dosage: 30 MG, ALTERNATE DAY
     Route: 058
     Dates: start: 20200121
  2. SOMAVERT [Suspect]
     Active Substance: PEGVISOMANT
     Dosage: 30 MG, DAILY
     Route: 058
  3. SOMAVERT [Suspect]
     Active Substance: PEGVISOMANT
     Dosage: 15 MG, ALTERNATE DAY
     Route: 058
  4. SOMAVERT [Suspect]
     Active Substance: PEGVISOMANT
     Dosage: 10 MG, DAILY
     Route: 058
     Dates: start: 20190301
  5. SOMAVERT [Suspect]
     Active Substance: PEGVISOMANT
     Dosage: 30 MG, ALTERNATE DAY
     Route: 058
     Dates: end: 201912
  6. SOMAVERT [Suspect]
     Active Substance: PEGVISOMANT
     Indication: ACROMEGALY
     Dosage: 30 MG, DAILY
     Route: 058
     Dates: start: 2019

REACTIONS (20)
  - Cardiac disorder [Unknown]
  - Eye infection [Unknown]
  - Hepatic function abnormal [Unknown]
  - Pyrexia [Unknown]
  - Coronavirus test positive [Unknown]
  - Dysuria [Unknown]
  - Rash [Unknown]
  - Drug ineffective [Unknown]
  - Malabsorption from injection site [Not Recovered/Not Resolved]
  - Insulin-like growth factor increased [Unknown]
  - Urticaria [Unknown]
  - Intentional product misuse [Unknown]
  - Fungal infection [Unknown]
  - Benign prostatic hyperplasia [Unknown]
  - Abnormal organ growth [Unknown]
  - Skin hypertrophy [Unknown]
  - Pain [Unknown]
  - Condition aggravated [Unknown]
  - Insulin-like growth factor decreased [Unknown]
  - Herpes zoster [Unknown]

NARRATIVE: CASE EVENT DATE: 20200109
